FAERS Safety Report 5491406-0 (Version None)
Quarter: 2007Q4

REPORT INFORMATION
  Report Type: 
  Country: None (occurrence: None)
  Receive Date: 20071018
  Receipt Date: 20071004
  Transmission Date: 20080405
  Serious: Yes (Disabling)
  Sender: FDA-Public Use
  Company Number: S07-IRL-02863-01

PATIENT
  Age: 45 Year
  Sex: Female

DRUGS (2)
  1. LEXAPRO [Suspect]
     Indication: DEPRESSION
     Dosage: 10 MG QD PO
     Route: 048
     Dates: start: 20070524, end: 20070602
  2. AMOXICILLIN [Concomitant]

REACTIONS (1)
  - VAGINAL HAEMORRHAGE [None]
